FAERS Safety Report 7391856-1 (Version None)
Quarter: 2011Q2

REPORT INFORMATION
  Report Type: 
  Country: None (occurrence: None)
  Receive Date: 20110404
  Receipt Date: 20110328
  Transmission Date: 20111010
  Serious: Yes (Death)
  Sender: FDA-Public Use
  Company Number: HU-ROCHE-768375

PATIENT
  Sex: Female

DRUGS (2)
  1. PACLITAXEL [Suspect]
     Route: 065
  2. AVASTIN [Suspect]
     Route: 065

REACTIONS (1)
  - SKIN NECROSIS [None]
